FAERS Safety Report 24844737 (Version 1)
Quarter: 2025Q1

REPORT INFORMATION
  Report Type: Spontaneous
  Country: US (occurrence: US)
  Receive Date: 20250115
  Receipt Date: 20250115
  Transmission Date: 20250409
  Serious: No
  Sender: BRISTOL-MYERS SQUIBB COMPANY
  Company Number: US-BRISTOL-MYERS SQUIBB COMPANY-2025-004051

PATIENT
  Age: 89 Year
  Sex: Male
  Weight: 77.55 kg

DRUGS (3)
  1. ELIQUIS [Suspect]
     Active Substance: APIXABAN
     Indication: Product used for unknown indication
  2. BRUKINSA [Suspect]
     Active Substance: ZANUBRUTINIB
     Indication: B-cell small lymphocytic lymphoma
     Route: 048
     Dates: start: 20240630
  3. BRUKINSA [Suspect]
     Active Substance: ZANUBRUTINIB
     Route: 048
     Dates: start: 20240730

REACTIONS (7)
  - Back disorder [Not Recovered/Not Resolved]
  - Asthenia [Recovering/Resolving]
  - Contusion [Recovering/Resolving]
  - Pollakiuria [Unknown]
  - Nausea [Recovering/Resolving]
  - Limb injury [Unknown]
  - Impaired healing [Unknown]
